FAERS Safety Report 10268801 (Version 1)
Quarter: 2014Q2

REPORT INFORMATION
  Report Type: Spontaneous
  Country: US (occurrence: US)
  Receive Date: 20140630
  Receipt Date: 20140630
  Transmission Date: 20141212
  Serious: Yes (Hospitalization)
  Sender: FDA-Public Use
  Company Number: PHHY2014US077906

PATIENT
  Age: 42 Year
  Sex: Male

DRUGS (8)
  1. AMITRIPTYLINE [Suspect]
  2. COCAINE [Suspect]
  3. PHENCYCLIDINE [Suspect]
  4. OPIOIDS [Suspect]
  5. BUPRENORPHINE [Concomitant]
  6. NALOXONE [Concomitant]
  7. FLUOXETINE [Concomitant]
  8. BUSPIRONE [Concomitant]

REACTIONS (12)
  - Acute coronary syndrome [Unknown]
  - Brugada syndrome [Unknown]
  - Electrocardiogram ST segment elevation [Unknown]
  - Loss of consciousness [Unknown]
  - Coma scale abnormal [Unknown]
  - Unresponsive to stimuli [Unknown]
  - Hypotension [Unknown]
  - Generalised tonic-clonic seizure [Unknown]
  - Electrocardiogram QT prolonged [Unknown]
  - Drug level increased [Unknown]
  - Overdose [Unknown]
  - Toxicity to various agents [Unknown]
